FAERS Safety Report 4805236-3 (Version None)
Quarter: 2005Q4

REPORT INFORMATION
  Report Type: 
  Country: None (occurrence: None)
  Receive Date: 20051017
  Receipt Date: 20051003
  Transmission Date: 20060501
  Serious: Yes (Other)
  Sender: FDA-Public Use
  Company Number: 2005137282

PATIENT
  Age: 1 Year
  Sex: Male
  Weight: 9.5255 kg

DRUGS (1)
  1. VISINE (TETRYZOLINE) [Suspect]
     Indication: ACCIDENTAL EXPOSURE
     Dosage: 1/4 OF A .5 OZ. BOTTLE ONCE, ORAL
     Route: 048
     Dates: start: 20051003, end: 20051003

REACTIONS (7)
  - ACCIDENTAL EXPOSURE [None]
  - DEPRESSED LEVEL OF CONSCIOUSNESS [None]
  - LETHARGY [None]
  - PALLOR [None]
  - PUPILLARY REFLEX IMPAIRED [None]
  - SCREAMING [None]
  - SOMNOLENCE [None]
